FAERS Safety Report 7085626-1 (Version None)
Quarter: 2010Q4

REPORT INFORMATION
  Report Type: 
  Country: None (occurrence: None)
  Receive Date: 20101027
  Receipt Date: 20101012
  Transmission Date: 20110411
  Serious: Yes (Other)
  Sender: FDA-Public Use
  Company Number: AUR-APL-2010-02563

PATIENT
  Age: 69 Year

DRUGS (5)
  1. HYDROCHLOROTHIAZIDE [Suspect]
  2. METFORMIN HCL [Suspect]
  3. SERTRALINE HYDROCHLORIDE [Suspect]
  4. ENALAPRIL MALEATE [Suspect]
  5. GRACINIA [Suspect]

REACTIONS (2)
  - FIBROUS HISTIOCYTOMA [None]
  - RASH [None]
